FAERS Safety Report 7372928-4 (Version None)
Quarter: 2011Q1

REPORT INFORMATION
  Report Type: 
  Country: None (occurrence: None)
  Receive Date: 20110324
  Receipt Date: 20110321
  Transmission Date: 20110831
  Serious: Yes (Other)
  Sender: FDA-Public Use
  Company Number: US-PFIZER INC-2011062113

PATIENT
  Sex: Female

DRUGS (5)
  1. ZOLOFT [Suspect]
     Dosage: 150 MG, 1X/DAY
  2. ZOLOFT [Suspect]
     Dosage: 150 MG, 1X/DAY
  3. ZOLOFT [Suspect]
     Indication: ANXIETY
     Dosage: 50 MG, 1X/DAY
  4. ZOLOFT [Suspect]
     Dosage: 100 MG, 1X/DAY
  5. ZOLOFT [Suspect]
     Dosage: 200 MG, 1X/DAY

REACTIONS (4)
  - RIB FRACTURE [None]
  - KNEE OPERATION [None]
  - DRUG INEFFECTIVE [None]
  - MALAISE [None]
